FAERS Safety Report 15018508 (Version 8)
Quarter: 2018Q4

REPORT INFORMATION
  Report Type: Report from Study
  Country: None (occurrence: TW)
  Receive Date: 20180615
  Receipt Date: 20181127
  Transmission Date: 20190204
  Serious: Yes (Hospitalization)
  Sender: FDA-Public Use
  Company Number: TW-BAUSCH-BL-2018-016899

PATIENT
  Age: 38 Year
  Sex: Male
  Weight: 73 kg

DRUGS (4)
  1. CELECOXIB. [Concomitant]
     Active Substance: CELECOXIB
     Indication: PRODUCT USED FOR UNKNOWN INDICATION
     Route: 048
     Dates: start: 20170606
  2. CARISOPRODOL. [Concomitant]
     Active Substance: CARISOPRODOL
     Indication: PRODUCT USED FOR UNKNOWN INDICATION
     Route: 048
     Dates: start: 20170425
  3. KHK4827 [Suspect]
     Active Substance: BRODALUMAB
     Indication: ANKYLOSING SPONDYLITIS
     Dosage: DURATION OF 4 MONTHS 21 DAYS
     Route: 058
     Dates: start: 20180102, end: 20180522
  4. KHK4827 [Suspect]
     Active Substance: BRODALUMAB
     Route: 058
     Dates: start: 20180718, end: 20180813

REACTIONS (1)
  - Cellulitis [Recovered/Resolved]

NARRATIVE: CASE EVENT DATE: 20180601
